FAERS Safety Report 19661963 (Version 1)
Quarter: 2021Q3

REPORT INFORMATION
  Report Type: Spontaneous
  Country: US (occurrence: US)
  Receive Date: 20210805
  Receipt Date: 20210805
  Transmission Date: 20211014
  Serious: Yes (Other)
  Sender: FDA-Public Use
  Company Number: US-ACCORD-206163

PATIENT
  Age: 63 Year
  Sex: Female
  Weight: 88.72 kg

DRUGS (10)
  1. DOCETAXEL ACCORD [Suspect]
     Active Substance: DOCETAXEL
     Indication: BREAST CANCER
     Dosage: STRENGTH: 20MG/ML, FOR INJ/USP
     Route: 042
     Dates: start: 20201007, end: 20201007
  2. GABAPENTIN. [Concomitant]
     Active Substance: GABAPENTIN
     Dosage: STRENGTH: 100 MG
     Dates: start: 20201001
  3. LISINOPRIL. [Concomitant]
     Active Substance: LISINOPRIL
     Dosage: STRENGTH: 20 MG, 22?JUL?2020;1 PO QD
     Dates: start: 20200722
  4. ONDANSETRON [Concomitant]
     Active Substance: ONDANSETRON
     Dosage: 21 TABLETS;1 PO TID X 7 DAYS STARTING DAY AFTER CHEMO
     Dates: start: 20201001
  5. COLECALCIFEROL [Concomitant]
     Active Substance: CHOLECALCIFEROL
     Dosage: 125 MCG (5,000 UNIT)
     Dates: start: 20200903
  6. PROCHLORPERAZINE. [Concomitant]
     Active Substance: PROCHLORPERAZINE
     Dosage: STRENGTH: 10 MG; 60 TABLETS
     Dates: start: 20201001
  7. GARCINIA GUMMI?GUTTA [Concomitant]
     Active Substance: DIETARY SUPPLEMENT
     Dates: start: 20200903
  8. ALLIUM SATIVUM [Concomitant]
     Active Substance: GARLIC
     Dates: start: 20200903
  9. PRAVASTATIN. [Concomitant]
     Active Substance: PRAVASTATIN
     Dosage: STRENGTH: 40 MG; 1 PO QD
     Dates: start: 20200722
  10. DEXAMETHASONE. [Concomitant]
     Active Substance: DEXAMETHASONE
     Dosage: STRENGTH: 4 MG;
     Dates: start: 20201001

REACTIONS (2)
  - Back pain [Recovered/Resolved]
  - Flushing [Recovered/Resolved]

NARRATIVE: CASE EVENT DATE: 20201007
